FAERS Safety Report 6190755-0 (Version None)
Quarter: 2009Q2

REPORT INFORMATION
  Report Type: 
  Country: None (occurrence: None)
  Receive Date: 20090514
  Receipt Date: 20090504
  Transmission Date: 20091009
  Serious: Yes (Other)
  Sender: FDA-Public Use
  Company Number: DE-GILEAD-2009-0021468

PATIENT
  Sex: Male
  Weight: 78 kg

DRUGS (2)
  1. VIREAD [Suspect]
     Indication: HEPATITIS B
     Route: 048
     Dates: start: 20051001
  2. HEPSERA [Suspect]
     Indication: HEPATITIS B
     Dates: start: 20040901, end: 20050601

REACTIONS (3)
  - BLOOD CREATINE PHOSPHOKINASE INCREASED [None]
  - MUSCLE SWELLING [None]
  - NO THERAPEUTIC RESPONSE [None]
